FAERS Safety Report 10599828 (Version 1)
Quarter: 2014Q4

REPORT INFORMATION
  Report Type: Spontaneous
  Country: BR (occurrence: BR)
  Receive Date: 20141121
  Receipt Date: 20141121
  Transmission Date: 20150529
  Serious: Yes (Other)
  Sender: FDA-Public Use
  Company Number: BR-BAXTER-2014BAX069143

PATIENT
  Age: 36 Year
  Sex: Male

DRUGS (2)
  1. GENUXAL [Suspect]
     Active Substance: CYCLOPHOSPHAMIDE
     Indication: MULTIFOCAL MOTOR NEUROPATHY
     Route: 065
     Dates: start: 2009
  2. ENDOBULIN [Suspect]
     Active Substance: HUMAN IMMUNOGLOBULIN G
     Indication: MULTIFOCAL MOTOR NEUROPATHY
     Route: 042
     Dates: start: 2007

REACTIONS (1)
  - Periodontal disease [Recovering/Resolving]
